FAERS Safety Report 5400916-3 (Version None)
Quarter: 2007Q3

REPORT INFORMATION
  Report Type: 
  Country: None (occurrence: None)
  Receive Date: 20070730
  Receipt Date: 20060921
  Transmission Date: 20080115
  Serious: No
  Sender: FDA-Public Use
  Company Number: A0621013A

PATIENT
  Age: 4 Month
  Sex: Female

DRUGS (6)
  1. ZANTAC 150 [Suspect]
     Indication: GASTRIC DISORDER
     Dosage: .5ML TWICE PER DAY
     Route: 048
     Dates: start: 20060920, end: 20060920
  2. TYLENOL (CAPLET) [Concomitant]
  3. HIBVAX [Concomitant]
  4. DTAP VACCINE [Concomitant]
  5. IPV [Concomitant]
     Route: 065
  6. PNEUMOCOCCAL VACCINE [Concomitant]

REACTIONS (2)
  - PYREXIA [None]
  - VOMITING [None]
